FAERS Safety Report 5379447-5 (Version None)
Quarter: 2007Q3

REPORT INFORMATION
  Report Type: 
  Country: None (occurrence: None)
  Receive Date: 20070703
  Receipt Date: 20070622
  Transmission Date: 20080115
  Serious: Yes (Death, Hospitalization)
  Sender: FDA-Public Use
  Company Number: TPA2007A01354

PATIENT
  Sex: Female

DRUGS (4)
  1. ACTOS [Suspect]
     Indication: TYPE 2 DIABETES MELLITUS
     Dosage: SEE IMAGE
     Route: 048
  2. METFORMIN (METFORMIN) [Concomitant]
  3. GLYBURIDE [Concomitant]
  4. LASIX [Concomitant]

REACTIONS (4)
  - CARDIAC FAILURE CONGESTIVE [None]
  - OEDEMA PERIPHERAL [None]
  - PULMONARY OEDEMA [None]
  - TREATMENT NONCOMPLIANCE [None]
